FAERS Safety Report 5825132-2 (Version None)
Quarter: 2008Q3

REPORT INFORMATION
  Report Type: 
  Country: None (occurrence: None)
  Receive Date: 20080729
  Receipt Date: 20080723
  Transmission Date: 20090109
  Serious: Yes (Death, Hospitalization)
  Sender: FDA-Public Use
  Company Number: GB-PURDUE-GBR_2006_0002627

PATIENT
  Age: 77 Year
  Sex: Male

DRUGS (3)
  1. MORPHINE [Suspect]
     Indication: PAIN
     Route: 048
     Dates: start: 20051001
  2. LYRICA [Suspect]
     Indication: NEURALGIA
     Dosage: 75 MG, BID
     Route: 065
     Dates: start: 20051001
  3. DICLOFENAC SODIUM [Concomitant]
     Indication: PAIN
     Route: 065

REACTIONS (4)
  - CONFUSIONAL STATE [None]
  - DRUG INTERACTION [None]
  - TRANSIENT ISCHAEMIC ATTACK [None]
  - UNRESPONSIVE TO STIMULI [None]
